FAERS Safety Report 18096239 (Version 3)
Quarter: 2021Q2

REPORT INFORMATION
  Report Type: Spontaneous
  Country: US (occurrence: US)
  Receive Date: 20200730
  Receipt Date: 20210629
  Transmission Date: 20210717
  Serious: Yes (Life-Threatening, Hospitalization)
  Sender: FDA-Public Use
  Company Number: US-TEVA-2020-US-1806036

PATIENT
  Age: 67 Year
  Sex: Male

DRUGS (3)
  1. METRONIDAZOLE. [Suspect]
     Active Substance: METRONIDAZOLE
     Indication: PNEUMONIA ASPIRATION
     Dosage: 2000 MILLIGRAM DAILY; DURING HOSPITAL STAY
     Route: 065
  2. METRONIDAZOLE. [Suspect]
     Active Substance: METRONIDAZOLE
     Indication: ENTERITIS
     Dosage: RECEIVING UNCERTAIN DOSAGE FOR SEVERAL MONTHS
     Route: 065
  3. AMOXICILLIN. [Concomitant]
     Active Substance: AMOXICILLIN
     Indication: PNEUMONIA ASPIRATION
     Route: 065

REACTIONS (1)
  - Toxic encephalopathy [Not Recovered/Not Resolved]
